FAERS Safety Report 8763121 (Version 1)
Quarter: 2012Q4

REPORT INFORMATION
  Report Type: 
  Country: US (occurrence: US)
  Receive Date: 20120831
  Receipt Date: 20120831
  Transmission Date: 20130627
  Serious: Yes (Hospitalization)
  Sender: FDA-Public Use
  Company Number: US-MYLANLABS-2012S1017186

PATIENT
  Age: 54 Year
  Sex: Male

DRUGS (1)
  1. MORPHINE [Suspect]
     Indication: ACCIDENTAL OVERDOSE
     Dosage: pills
     Route: 048

REACTIONS (7)
  - Accidental overdose [Recovering/Resolving]
  - Leukoencephalopathy [Recovering/Resolving]
  - Hypoxic-ischaemic encephalopathy [Recovering/Resolving]
  - Drug effect delayed [Recovering/Resolving]
  - Stupor [Recovering/Resolving]
  - Confusional state [Recovering/Resolving]
  - Brain hypoxia [Recovering/Resolving]
